FAERS Safety Report 6465379-8 (Version None)
Quarter: 2009Q4

REPORT INFORMATION
  Report Type: 
  Country: None (occurrence: None)
  Receive Date: 20091201
  Receipt Date: 20090319
  Transmission Date: 20100525
  Serious: No
  Sender: FDA-Public Use
  Company Number: US-AMGEN-KDL288829

PATIENT
  Sex: Female
  Weight: 104 kg

DRUGS (1)
  1. ENBREL [Suspect]
     Indication: RHEUMATOID ARTHRITIS
     Route: 058
     Dates: start: 20060801

REACTIONS (3)
  - ALOPECIA [None]
  - PAIN [None]
  - SKIN NODULE [None]
